FAERS Safety Report 16439278 (Version 3)
Quarter: 2019Q2

REPORT INFORMATION
  Report Type: Spontaneous
  Country: US (occurrence: US)
  Receive Date: 20190617
  Receipt Date: 20190627
  Transmission Date: 20190711
  Serious: Yes (Other)
  Sender: FDA-Public Use
  Company Number: PHHY2019US137378

PATIENT
  Age: 71 Year
  Sex: Female

DRUGS (15)
  1. OCUFEN [Concomitant]
     Active Substance: FLURBIPROFEN SODIUM
     Indication: PREOPERATIVE CARE
     Route: 065
  2. DUREZOL [Concomitant]
     Active Substance: DIFLUPREDNATE
     Indication: OCULAR HYPERTENSION
     Route: 065
  3. BROMFENAC [Concomitant]
     Active Substance: BROMFENAC SODIUM
     Indication: POSTOPERATIVE CARE
     Dosage: UNK UNK, QID
     Route: 065
  4. DORZOLAMIDE/TIMOLOL [Concomitant]
     Active Substance: DORZOLAMIDE\TIMOLOL
     Indication: INTRAOCULAR PRESSURE INCREASED
     Route: 065
  5. GATIFLOXACIN. [Concomitant]
     Active Substance: GATIFLOXACIN
     Indication: POSTOPERATIVE CARE
     Dosage: UNK UNK, QID
     Route: 065
  6. LIDOCAINE. [Concomitant]
     Active Substance: LIDOCAINE
     Indication: PREOPERATIVE CARE
     Route: 065
  7. CYCLOGEL [Concomitant]
     Indication: PREOPERATIVE CARE
     Route: 065
  8. DUOVISC [Concomitant]
     Active Substance: CHONDROITIN SULFATE A\HYALURONATE SODIUM
     Indication: PRODUCT USED FOR UNKNOWN INDICATION
     Route: 065
  9. BSS [Suspect]
     Active Substance: CALCIUM CHLORIDE\MAGNESIUM CHLORIDE\POTASSIUM CHLORIDE\SODIUM ACETATE\SODIUM CHLORIDE\SODIUM CITRATE
     Indication: EYE IRRIGATION
     Dosage: UNK
     Route: 031
     Dates: start: 20190528, end: 20190528
  10. PHENYLEPHRINE HYDROCHLORIDE. [Concomitant]
     Active Substance: PHENYLEPHRINE HYDROCHLORIDE
     Indication: PREOPERATIVE CARE
     Route: 065
  11. EPINEPHRINE. [Concomitant]
     Active Substance: EPINEPHRINE
     Indication: PRODUCT USED FOR UNKNOWN INDICATION
     Route: 065
  12. POVIDONE-IODINE. [Concomitant]
     Active Substance: POVIDONE-IODINE
     Indication: PREOPERATIVE CARE
     Route: 065
  13. MOXIFLOXACIN. [Concomitant]
     Active Substance: MOXIFLOXACIN
     Indication: PREOPERATIVE CARE
     Route: 065
  14. TROPICAMIDE. [Concomitant]
     Active Substance: TROPICAMIDE
     Indication: PREOPERATIVE CARE
     Route: 065
  15. PREDNISOLONE. [Concomitant]
     Active Substance: PREDNISOLONE
     Indication: POSTOPERATIVE CARE
     Dosage: UNK UNK, QID
     Route: 065

REACTIONS (7)
  - Anterior chamber cell [Recovered/Resolved]
  - Vitritis [Recovered/Resolved]
  - Eye inflammation [Recovered/Resolved]
  - Product quality issue [Unknown]
  - Toxic anterior segment syndrome [Recovered/Resolved]
  - Wrong technique in product usage process [Unknown]
  - Aqueous fibrin [Recovered/Resolved]

NARRATIVE: CASE EVENT DATE: 20190529
